FAERS Safety Report 8863144 (Version 1)
Quarter: 2012Q4

REPORT INFORMATION
  Report Type: 
  Country: NL (occurrence: NL)
  Receive Date: 20121026
  Receipt Date: 20121026
  Transmission Date: 20130627
  Serious: Yes (Other)
  Sender: FDA-Public Use
  Company Number: NL-ROCHE-1147802

PATIENT

DRUGS (10)
  1. BEVACIZUMAB [Suspect]
     Indication: METASTASES TO LARGE INTESTINE
     Route: 042
  2. BEVACIZUMAB [Suspect]
     Indication: METASTASES TO LIVER
  3. OXALIPLATIN [Suspect]
     Indication: METASTASES TO LARGE INTESTINE
     Route: 065
  4. OXALIPLATIN [Suspect]
     Indication: METASTASES TO LIVER
  5. LEUCOVORIN [Suspect]
     Indication: METASTASES TO LARGE INTESTINE
     Route: 065
  6. LEUCOVORIN [Suspect]
     Indication: METASTASES TO LIVER
  7. 5-FU [Suspect]
     Indication: METASTASES TO LARGE INTESTINE
     Route: 040
  8. 5-FU [Suspect]
     Indication: METASTASES TO LIVER
     Route: 040
  9. FOLINIC ACID [Suspect]
     Indication: METASTASES TO LARGE INTESTINE
     Route: 065
  10. FOLINIC ACID [Suspect]
     Indication: METASTASES TO LIVER

REACTIONS (11)
  - Cardiotoxicity [Unknown]
  - Neutropenia [Unknown]
  - Diarrhoea [Unknown]
  - Vomiting [Unknown]
  - Nausea [Unknown]
  - Neuropathy peripheral [Unknown]
  - Fatigue [Unknown]
  - Hypertension [Unknown]
  - Lung disorder [Unknown]
  - Gastrointestinal disorder [Unknown]
  - Renal disorder [Unknown]
